FAERS Safety Report 9826511 (Version 4)
Quarter: 2014Q2

REPORT INFORMATION
  Report Type: Spontaneous
  Country: US (occurrence: US)
  Receive Date: 20140117
  Receipt Date: 20140414
  Transmission Date: 20141212
  Serious: No
  Sender: FDA-Public Use
  Company Number: US-BIOGENIDEC-2014BI001797

PATIENT
  Age: 60 Year
  Sex: Female

DRUGS (13)
  1. TECFIDERA [Suspect]
     Indication: MULTIPLE SCLEROSIS
     Route: 048
  2. TECFIDERA [Suspect]
     Indication: MULTIPLE SCLEROSIS
     Route: 048
  3. ZOVIRAX [Concomitant]
  4. BACLOFEN [Concomitant]
  5. PREDNISONE [Concomitant]
  6. CALCIUM 600 [Concomitant]
  7. CINNAMON [Concomitant]
  8. LEVOTHYROXINE SODIUM [Concomitant]
  9. MAGNESIUM [Concomitant]
  10. FLUORIDE [Concomitant]
  11. OMEGA 3 [Concomitant]
  12. OXYBUTYNIN CHLORIDE ER [Concomitant]
  13. TURMERIC [Concomitant]

REACTIONS (6)
  - Herpes zoster [Not Recovered/Not Resolved]
  - Sinusitis [Unknown]
  - Conjunctivitis [Unknown]
  - Mobility decreased [Unknown]
  - Rash [Unknown]
  - Diarrhoea [Unknown]
